FAERS Safety Report 6730198-1 (Version None)
Quarter: 2010Q2

REPORT INFORMATION
  Report Type: 
  Country: None (occurrence: None)
  Receive Date: 20100518
  Receipt Date: 20100510
  Transmission Date: 20101027
  Serious: Yes (Other)
  Sender: FDA-Public Use
  Company Number: CN-GENENTECH-301724

PATIENT

DRUGS (4)
  1. RITUXIMAB [Suspect]
     Indication: B-CELL LYMPHOMA
     Dosage: 375 MG/M2, Q3W
     Route: 041
  2. NAVELBINE [Suspect]
     Indication: B-CELL LYMPHOMA
     Dosage: 25 MG/M2, UNK
     Route: 041
  3. CISPLATIN [Suspect]
     Indication: B-CELL LYMPHOMA
     Dosage: 25 MG/M2, UNK
     Route: 041
  4. VP-16 [Suspect]
     Indication: B-CELL LYMPHOMA
     Dosage: 75 MG/M2, UNK
     Route: 041

REACTIONS (15)
  - ALOPECIA [None]
  - ANAEMIA [None]
  - BONE MARROW FAILURE [None]
  - FATIGUE [None]
  - GASTROINTESTINAL DISORDER [None]
  - INFECTION [None]
  - NAUSEA [None]
  - NEUTROPHIL COUNT DECREASED [None]
  - PLATELET COUNT DECREASED [None]
  - PYREXIA [None]
  - RASH [None]
  - RENAL IMPAIRMENT [None]
  - TRANSAMINASES INCREASED [None]
  - VOMITING [None]
  - WHITE BLOOD CELL COUNT DECREASED [None]
